FAERS Safety Report 7952478-4 (Version None)
Quarter: 2011Q4

REPORT INFORMATION
  Report Type: 
  Country: None (occurrence: None)
  Receive Date: 20111201
  Receipt Date: 20111117
  Transmission Date: 20120403
  Serious: Yes (Other)
  Sender: FDA-Public Use
  Company Number: US-WATSON-2011-19910

PATIENT
  Age: 52 Year
  Sex: Male

DRUGS (6)
  1. CYCLOSPORINE [Suspect]
     Indication: IMMUNOSUPPRESSION
     Dosage: UNK
     Route: 065
     Dates: start: 19900501, end: 19910701
  2. CYCLOSPORINE [Suspect]
     Dosage: 250 MG, BID
     Route: 065
     Dates: start: 19910701, end: 19911001
  3. PREDNISONE TAB [Suspect]
     Indication: IMMUNOSUPPRESSION
     Dosage: UNK
     Route: 065
     Dates: start: 19900501, end: 19900701
  4. IMMUNE GLOBULIN (HUMAN) [Suspect]
     Indication: IMMUNOSUPPRESSION
     Dosage: UNK
     Dates: start: 19900501, end: 19900701
  5. AZATHIOPRINE [Suspect]
     Indication: IMMUNOSUPPRESSION
     Dosage: UNK
     Route: 065
     Dates: start: 19910701
  6. METHYLPREDNISOLONE [Suspect]
     Indication: IMMUNOSUPPRESSION
     Dosage: UNK
     Route: 065
     Dates: start: 19910701

REACTIONS (5)
  - PLASMACYTOMA [None]
  - RENAL MASS [None]
  - EPSTEIN-BARR VIRUS ASSOCIATED LYMPHOPROLIFERATIVE DISORDER [None]
  - ABDOMINAL MASS [None]
  - HAEMATURIA [None]
